FAERS Safety Report 16634414 (Version 2)
Quarter: 2019Q3

REPORT INFORMATION
  Report Type: Report from Study
  Country: NL (occurrence: NL)
  Receive Date: 20190726
  Receipt Date: 20190821
  Transmission Date: 20191004
  Serious: Yes (Other)
  Sender: FDA-Public Use
  Company Number: NL-AMGEN-NLDSL2019065996

PATIENT
  Age: 81 Year
  Sex: Male

DRUGS (18)
  1. ABIRATERONA [Concomitant]
     Dosage: 500 MILLIGRAM, 1D2T
  2. CARBOMER [Concomitant]
     Active Substance: CARBOMER
     Dosage: 2 MILLIGRAM PER GRAM, 3D1DR
  3. XGEVA [Suspect]
     Active Substance: DENOSUMAB
     Dosage: UNK
     Route: 065
  4. CALCIUM CARBONATE W/COLECALCIFEROL [Concomitant]
     Active Substance: CALCIUM CARBONATE\CHOLECALCIFEROL
     Dosage: 2,5G/880IE (1000MG CA),QD
  5. CALCIUM + VITAMIN D3 [Concomitant]
     Active Substance: CALCIUM\CHOLECALCIFEROL
     Dosage: UNK UNK, QD
  6. ATROPINE. [Concomitant]
     Active Substance: ATROPINE
     Dosage: 10 MILLIGRAM PER MILLILITRE, (1%) FL 10ML 2XD 1 DROP
     Route: 047
  7. CLOPIDOGREL [Concomitant]
     Active Substance: CLOPIDOGREL BISULFATE
     Dosage: 75 MILLIGRAM, QD
  8. ENZALUTAMIDE [Concomitant]
     Active Substance: ENZALUTAMIDE
     Dosage: 40 MILLIGRAM, 4T QD
  9. PREDNISOLONE. [Concomitant]
     Active Substance: PREDNISOLONE
     Dosage: 5 MILLIGRAM, 2D1T
  10. CARBASALAATCALCIUM [Concomitant]
     Active Substance: CARBASPIRIN CALCIUM
     Dosage: 100 MILLIGRAM, QD, 1S
  11. XGEVA [Suspect]
     Active Substance: DENOSUMAB
     Indication: PROPHYLAXIS
     Dosage: 120 MILLIGRAM, Q4WK
     Route: 065
     Dates: start: 2016
  12. ACETAZOLAMIDE. [Concomitant]
     Active Substance: ACETAZOLAMIDE
     Dosage: 250 MILLIGRAM, 2D, 0.5T
  13. BRIMONIDINE;BRINZOLAMIDE [Concomitant]
     Dosage: 10/2 MILLIGRAM PER MILLILITRE, FL 5ML 2XD 1 DROP
  14. PREDNISOLONE [PREDNISOLONE ACETATE] [Concomitant]
     Dosage: 5 MILLIGRAM, 2D 1T
  15. ATORVASTATINE [ATORVASTATIN] [Concomitant]
     Active Substance: ATORVASTATIN
     Dosage: 40 MILLIGRAM, QD
  16. GOSERELINE [Concomitant]
     Active Substance: GOSERELIN
     Dosage: 10.8 MILLIGRAM, Q3MO
  17. TIMOLOL;TRAVOPROST [Concomitant]
     Active Substance: TIMOLOL\TRAVOPROST
     Dosage: 40UG/5MG/ML FL 2.5M 1D1DR
  18. PANTOPRAZOLE [Concomitant]
     Active Substance: PANTOPRAZOLE
     Dosage: 40 MILLIGRAM, QD

REACTIONS (4)
  - Eye disorder [Not Recovered/Not Resolved]
  - Cerebral infarction [Unknown]
  - Pain in jaw [Recovered/Resolved]
  - Fatigue [Unknown]

NARRATIVE: CASE EVENT DATE: 2019
